FAERS Safety Report 21375431 (Version 2)
Quarter: 2022Q4

REPORT INFORMATION
  Report Type: Spontaneous
  Country: AU (occurrence: AU)
  Receive Date: 20220926
  Receipt Date: 20221004
  Transmission Date: 20230112
  Serious: Yes (Life-Threatening, Hospitalization, Other)
  Sender: FDA-Public Use
  Company Number: AU-BAYER-2022P015225

PATIENT
  Age: 50 Year
  Sex: Male

DRUGS (2)
  1. ULTRAVIST [Suspect]
     Active Substance: IOPROMIDE
     Indication: Computerised tomogram neck
     Dosage: 80 ML, ONCE
     Route: 042
     Dates: start: 20220920, end: 20220920
  2. ULTRAVIST [Suspect]
     Active Substance: IOPROMIDE
     Indication: Chest scan

REACTIONS (4)
  - Anaphylactic reaction [Recovered/Resolved]
  - Eye movement disorder [Recovered/Resolved]
  - Erythema [Recovered/Resolved]
  - Dyspnoea [Recovered/Resolved]

NARRATIVE: CASE EVENT DATE: 20220920
